FAERS Safety Report 4377343-3 (Version None)
Quarter: 2004Q2

REPORT INFORMATION
  Report Type: 
  Country: None (occurrence: None)
  Receive Date: 20040609
  Receipt Date: 20040407
  Transmission Date: 20050107
  Serious: No
  Sender: FDA-Public Use
  Company Number: 2004208174US

PATIENT

DRUGS (1)
  1. BEXTRA [Suspect]
     Indication: ARTHRITIS
     Dosage: 20 MG, QD

REACTIONS (3)
  - BONE DISORDER [None]
  - GANGLION [None]
  - VIRAL UPPER RESPIRATORY TRACT INFECTION [None]
